FAERS Safety Report 13672405 (Version 1)
Quarter: 2017Q2

REPORT INFORMATION
  Report Type: Spontaneous
  Country: US (occurrence: US)
  Receive Date: 20170621
  Receipt Date: 20170621
  Transmission Date: 20170830
  Serious: No
  Sender: FDA-Public Use
  Company Number: US-ELI_LILLY_AND_COMPANY-US201705009719

PATIENT
  Sex: Female

DRUGS (2)
  1. TRULICITY [Suspect]
     Active Substance: DULAGLUTIDE
     Dosage: 0.75 MG, UNKNOWN
     Route: 058
  2. TRULICITY [Suspect]
     Active Substance: DULAGLUTIDE
     Indication: WEIGHT CONTROL
     Dosage: 0.75 MG, UNKNOWN
     Route: 058
     Dates: start: 201701

REACTIONS (6)
  - Decreased appetite [Not Recovered/Not Resolved]
  - Faeces soft [Not Recovered/Not Resolved]
  - Gastrointestinal pain [Recovered/Resolved]
  - Injection site pain [Recovered/Resolved]
  - Off label use [Unknown]
  - Muscle spasms [Recovered/Resolved]

NARRATIVE: CASE EVENT DATE: 201701
